FAERS Safety Report 8973366 (Version 1)
Quarter: 2012Q4

REPORT INFORMATION
  Report Type: 
  Country: US (occurrence: US)
  Receive Date: 20121218
  Receipt Date: 20121218
  Transmission Date: 20130627
  Serious: No
  Sender: FDA-Public Use
  Company Number: US-BRISTOL-MYERS SQUIBB COMPANY-16945958

PATIENT
  Age: 64 Year
  Sex: Female

DRUGS (6)
  1. ABILIFY [Suspect]
     Indication: DEPRESSION
  2. ABILIFY [Suspect]
     Indication: SLEEP DISORDER
  3. LEXAPRO [Suspect]
     Indication: SLEEP DISORDER
  4. LEXAPRO [Suspect]
     Indication: DEPRESSION
  5. VIIBRYD [Suspect]
     Indication: DEPRESSION
  6. VIIBRYD [Suspect]
     Indication: SLEEP DISORDER

REACTIONS (1)
  - Akathisia [Recovering/Resolving]
